FAERS Safety Report 9746296 (Version 2)
Quarter: 2013Q4

REPORT INFORMATION
  Report Type: Spontaneous
  Country: BR (occurrence: None)
  Receive Date: 20131205
  Receipt Date: 20131218
  Transmission Date: 20140711
  Serious: Yes (Hospitalization)
  Sender: FDA-Public Use
  Company Number: DSJ-2013-26186

PATIENT
  Age: 63 Year
  Sex: Male
  Weight: 68 kg

DRUGS (2)
  1. BENICAR [Suspect]
     Indication: HYPERTENSION
     Dosage: UNKNOWN ( 1 IN 1 D, PER ORAL)
     Route: 048
     Dates: end: 20131028
  2. EZETIMIBE/SIMVASTATIN [Suspect]
     Indication: HYPERCHOLESTEROLAEMIA
     Route: 048

REACTIONS (2)
  - Drug ineffective [None]
  - Surgery [None]
